FAERS Safety Report 8427962-X (Version None)
Quarter: 2012Q2

REPORT INFORMATION
  Report Type: 
  Country: None (occurrence: None)
  Receive Date: 20120611
  Receipt Date: 20120605
  Transmission Date: 20120825
  Serious: Yes (Life-Threatening, Hospitalization, Other)
  Sender: FDA-Public Use
  Company Number: US-ASTRAZENECA-2012SE26101

PATIENT
  Age: 44 Year
  Sex: Female

DRUGS (13)
  1. SEROQUEL XR [Suspect]
     Indication: SCHIZOPHRENIA
     Route: 048
  2. SEROQUEL XR [Suspect]
     Indication: PSYCHOTIC DISORDER
     Route: 048
  3. SEROQUEL XR [Suspect]
     Route: 048
  4. ANTIDEPRESSANTS [Concomitant]
  5. SEROQUEL XR [Suspect]
     Route: 048
  6. ZOLOFT [Suspect]
     Indication: DEPRESSION
     Dosage: 150-200 MG
     Route: 048
  7. SEROQUEL XR [Suspect]
     Dosage: 50-100 MG, TWICE DAILY
     Route: 048
  8. SEROQUEL XR [Suspect]
     Dosage: 50-100 MG, TWICE DAILY
     Route: 048
  9. SEROQUEL XR [Suspect]
     Indication: INSOMNIA
     Route: 048
  10. SEROQUEL XR [Suspect]
     Route: 048
  11. SEROQUEL XR [Suspect]
     Dosage: 50-100 MG, TWICE DAILY
     Route: 048
  12. GEODON [Suspect]
     Route: 048
  13. LAMICTAL [Concomitant]
     Indication: AFFECTIVE DISORDER
     Route: 048

REACTIONS (1)
  - SEROTONIN SYNDROME [None]
